FAERS Safety Report 12464241 (Version 1)
Quarter: 2016Q2

REPORT INFORMATION
  Report Type: Spontaneous
  Country: US (occurrence: None)
  Receive Date: 20160613
  Receipt Date: 20160613
  Transmission Date: 20160815
  Serious: Yes (Life-Threatening, Hospitalization, Disabling, Other)
  Sender: FDA-Public Use
  Company Number: None

PATIENT
  Age: 58 Year
  Sex: Male
  Weight: 113.4 kg

DRUGS (20)
  1. GABAPENTIN. [Concomitant]
     Active Substance: GABAPENTIN
  2. FISH OIL OMEGA-3 [Concomitant]
  3. NITROGLYCERIN. [Concomitant]
     Active Substance: NITROGLYCERIN
  4. ALBUTEROL. [Concomitant]
     Active Substance: ALBUTEROL
  5. INVOKANA [Concomitant]
     Active Substance: CANAGLIFLOZIN
  6. METFORMIN [Concomitant]
     Active Substance: METFORMIN HYDROCHLORIDE
  7. VITAMIN C [Concomitant]
     Active Substance: ASCORBIC ACID
  8. CLOPIDOGREL, 75 MG APOTEX USA [Suspect]
     Active Substance: CLOPIDOGREL BISULFATE
     Indication: CORONARY ARTERIAL STENT INSERTION
     Route: 048
     Dates: start: 20091026, end: 20160523
  9. CYCLOBENZAPRINE [Concomitant]
     Active Substance: CYCLOBENZAPRINE
  10. EFFIENT [Concomitant]
     Active Substance: PRASUGREL HYDROCHLORIDE
  11. ASPIRIN. [Concomitant]
     Active Substance: ASPIRIN
  12. NASONEX [Concomitant]
     Active Substance: MOMETASONE FUROATE
  13. ATORVASTATIN [Concomitant]
     Active Substance: ATORVASTATIN
  14. ESOMEPRAZOL MAG DR [Concomitant]
  15. LISNOPRIL [Concomitant]
  16. NIACIN ER [Concomitant]
     Active Substance: NIACIN
  17. ONGLYZA [Concomitant]
     Active Substance: SAXAGLIPTIN HYDROCHLORIDE
  18. AUTO BI-PAP MACHINE [Concomitant]
  19. CARVEDILOL. [Concomitant]
     Active Substance: CARVEDILOL
  20. LORATADINE. [Concomitant]
     Active Substance: LORATADINE

REACTIONS (3)
  - Drug ineffective [None]
  - Coronary artery reocclusion [None]
  - Chest pain [None]

NARRATIVE: CASE EVENT DATE: 20160523
